FAERS Safety Report 21329711 (Version 4)
Quarter: 2024Q2

REPORT INFORMATION
  Report Type: Other
  Country: ZA (occurrence: None)
  Receive Date: 20220913
  Receipt Date: 20240524
  Transmission Date: 20240716
  Serious: Yes (Other)
  Sender: FDA-Public Use
  Company Number: ZA-ROCHE-3173778

PATIENT
  Sex: Female

DRUGS (3)
  1. OCREVUS [Suspect]
     Active Substance: OCRELIZUMAB
     Indication: Multiple sclerosis relapse
     Dosage: LAST OCREVUS INFUSION:  20/DEC/2023
     Route: 041
     Dates: start: 20210916
  2. OCREVUS [Suspect]
     Active Substance: OCRELIZUMAB
     Indication: Primary progressive multiple sclerosis
  3. BACLOFEN [Concomitant]
     Active Substance: BACLOFEN

REACTIONS (1)
  - Mass [Unknown]
